FAERS Safety Report 5453977-X (Version None)
Quarter: 2007Q3

REPORT INFORMATION
  Report Type: 
  Country: None (occurrence: None)
  Receive Date: 20070917
  Receipt Date: 20070228
  Transmission Date: 20080115
  Serious: Yes (Other)
  Sender: FDA-Public Use
  Company Number: US-ASTRAZENECA-2005UW13288

PATIENT
  Sex: Male
  Weight: 70.5 kg

DRUGS (5)
  1. SEROQUEL [Suspect]
     Indication: BIPOLAR I DISORDER
     Route: 048
     Dates: start: 19990101, end: 20000101
  2. SEROQUEL [Suspect]
     Route: 048
     Dates: start: 19990101, end: 20000101
  3. LITHIUM [Concomitant]
  4. PAXIL [Concomitant]
  5. DEPAKOTE [Concomitant]

REACTIONS (2)
  - DIABETES MELLITUS [None]
  - DIABETIC KETOACIDOSIS [None]
